FAERS Safety Report 16921556 (Version 4)
Quarter: 2019Q4

REPORT INFORMATION
  Report Type: Report from Study
  Country: FR (occurrence: FR)
  Receive Date: 20191015
  Receipt Date: 20191122
  Transmission Date: 20200122
  Serious: Yes (Death, Hospitalization, Other)
  Sender: FDA-Public Use
  Company Number: FR-TAKEDA-2019TUS043813

PATIENT
  Age: 75 Year
  Sex: Male
  Weight: 52 kg

DRUGS (4)
  1. REVLIMID [Suspect]
     Active Substance: LENALIDOMIDE
     Indication: PLASMA CELL MYELOMA
     Dosage: 15 MILLIGRAM
     Route: 048
     Dates: start: 20190103
  2. IXAZOMIB [Suspect]
     Active Substance: IXAZOMIB
     Indication: PLASMA CELL MYELOMA
     Dosage: 4 MILLIGRAM
     Route: 048
     Dates: start: 20190103, end: 20190801
  3. NEOFORDEX [Suspect]
     Active Substance: DEXAMETHASONE ACETATE
     Indication: PLASMA CELL MYELOMA
     Dosage: 40 MILLIGRAM
     Route: 048
     Dates: start: 20190103
  4. REVLIMID [Suspect]
     Active Substance: LENALIDOMIDE
     Dosage: 10 MILLIGRAM
     Route: 048
     Dates: end: 20190801

REACTIONS (8)
  - Plasma cell myeloma [Fatal]
  - Pancytopenia [Recovering/Resolving]
  - Anaemia [Fatal]
  - Neutropenia [Fatal]
  - Thrombocytopenia [Fatal]
  - Vertigo [Recovered/Resolved]
  - Aortic aneurysm [Fatal]
  - Thrombosis [Fatal]

NARRATIVE: CASE EVENT DATE: 20190410
